FAERS Safety Report 8497672-1 (Version None)
Quarter: 2012Q3

REPORT INFORMATION
  Report Type: 
  Country: None (occurrence: None)
  Receive Date: 20120709
  Receipt Date: 20120614
  Transmission Date: 20120928
  Serious: Yes (Other)
  Sender: FDA-Public Use
  Company Number: US-AMGEN-USASP2012037202

PATIENT
  Age: 54 Year
  Sex: Female

DRUGS (1)
  1. ENBREL [Suspect]
     Indication: RHEUMATOID ARTHRITIS
     Dosage: 50 MG, QWK
     Dates: start: 20110623

REACTIONS (7)
  - INTERVERTEBRAL DISC PROTRUSION [None]
  - HYPERSENSITIVITY [None]
  - ANGIOEDEMA [None]
  - SKIN ULCER [None]
  - RHEUMATOID ARTHRITIS [None]
  - MUSCLE TWITCHING [None]
  - HERPES ZOSTER [None]
